FAERS Safety Report 13613619 (Version 4)
Quarter: 2017Q4

REPORT INFORMATION
  Report Type: Spontaneous
  Country: US (occurrence: US)
  Receive Date: 20170605
  Receipt Date: 20171103
  Transmission Date: 20180320
  Serious: No
  Sender: FDA-Public Use
  Company Number: US-BIOGEN-2017BI00410197

PATIENT
  Sex: Female

DRUGS (1)
  1. TYSABRI [Suspect]
     Active Substance: NATALIZUMAB
     Indication: MULTIPLE SCLEROSIS
     Route: 065
     Dates: start: 20080826, end: 20090126

REACTIONS (5)
  - Fatigue [Recovered/Resolved]
  - Subcutaneous abscess [Recovered/Resolved]
  - Depression [Recovered/Resolved]
  - Drug intolerance [Unknown]
  - Bronchitis [Unknown]
